FAERS Safety Report 6188210-7 (Version None)
Quarter: 2009Q2

REPORT INFORMATION
  Report Type: 
  Country: None (occurrence: None)
  Receive Date: 20090513
  Receipt Date: 20090507
  Transmission Date: 20091009
  Serious: Yes (Other)
  Sender: FDA-Public Use
  Company Number: GR-PFIZER INC-2009210865

PATIENT
  Age: 83 Year

DRUGS (7)
  1. QUINAPRIL HCL + HYDROCHLOROTHIAZIDE [Suspect]
  2. NIFEDIPINE [Suspect]
  3. METFORMIN HCL [Suspect]
  4. MEDIGOXIN [Suspect]
  5. TICLOPIDINE [Suspect]
  6. FUROSEMIDE [Suspect]
  7. GLYCERYL TRINITRATE [Suspect]

REACTIONS (1)
  - PEMPHIGOID [None]
